FAERS Safety Report 7247401-4 (Version None)
Quarter: 2011Q1

REPORT INFORMATION
  Report Type: 
  Country: None (occurrence: None)
  Receive Date: 20110127
  Receipt Date: 20110118
  Transmission Date: 20110831
  Serious: Yes (Hospitalization, Other)
  Sender: FDA-Public Use
  Company Number: PHHY2010CA60889

PATIENT
  Sex: Male

DRUGS (5)
  1. DILAUDID [Concomitant]
  2. SANDOSTATIN LAR [Suspect]
     Dosage: 20 MG, UNK
     Dates: start: 20091021
  3. SANDOSTATIN LAR [Suspect]
     Indication: INSULINOMA
     Dosage: 20 MG, QMO
     Route: 030
     Dates: start: 20070201
  4. LACTULOSE [Concomitant]
  5. LYRICA [Concomitant]

REACTIONS (4)
  - ASCITES [None]
  - PAIN [None]
  - PALLIATIVE CARE [None]
  - OEDEMA [None]
